FAERS Safety Report 8574235-0 (Version None)
Quarter: 2012Q3

REPORT INFORMATION
  Report Type: 
  Country: None (occurrence: None)
  Receive Date: 20120806
  Receipt Date: 20120727
  Transmission Date: 20120928
  Serious: Yes (Death, Hospitalization)
  Sender: FDA-Public Use
  Company Number: PH-BAXTER-2012BAX013000

PATIENT
  Sex: Male

DRUGS (2)
  1. DIANEAL PD-2 W/ DEXTROSE 1.5% [Suspect]
     Route: 033
  2. DIANEAL PD-2 W/ DEXTROSE 4.25% [Suspect]
     Route: 033

REACTIONS (7)
  - SEPSIS [None]
  - PNEUMONIA ASPIRATION [None]
  - HYPERTENSIVE NEPHROPATHY [None]
  - RENAL FAILURE CHRONIC [None]
  - ACUTE RESPIRATORY FAILURE [None]
  - ASTHENIA [None]
  - HYPOKALAEMIA [None]
